FAERS Safety Report 20869470 (Version 1)
Quarter: 2022Q2

REPORT INFORMATION
  Report Type: Spontaneous
  Country: US (occurrence: None)
  Receive Date: 20220524
  Receipt Date: 20220524
  Transmission Date: 20220720
  Serious: No
  Sender: FDA-Public Use
  Company Number: 2022A181419

PATIENT
  Age: 62 Year
  Sex: Male

DRUGS (1)
  1. TAGRISSO [Suspect]
     Active Substance: OSIMERTINIB
     Indication: Lung neoplasm malignant
     Route: 048
     Dates: start: 202107

REACTIONS (4)
  - Rash macular [Not Recovered/Not Resolved]
  - COVID-19 [Recovered/Resolved]
  - Contusion [Not Recovered/Not Resolved]
  - Blood electrolytes abnormal [Not Recovered/Not Resolved]

NARRATIVE: CASE EVENT DATE: 20220101
